FAERS Safety Report 6870925-6 (Version None)
Quarter: 2010Q3

REPORT INFORMATION
  Report Type: 
  Country: None (occurrence: None)
  Receive Date: 20100723
  Receipt Date: 20100712
  Transmission Date: 20110219
  Serious: Yes (Other)
  Sender: FDA-Public Use
  Company Number: ES-JNJFOC-20080206362

PATIENT
  Age: 63 Year
  Sex: Male

DRUGS (8)
  1. REMICADE [Suspect]
     Indication: PSORIASIS
     Route: 042
  2. REMICADE [Suspect]
     Dosage: TOTAL OF 4 INFUSIONS
     Route: 042
  3. REMICADE [Suspect]
     Route: 042
  4. PARAPRES [Concomitant]
  5. DILTIAZEM [Concomitant]
  6. ASPIRIN [Concomitant]
  7. ZOCOR [Concomitant]
  8. POLARAMINE [Concomitant]
     Indication: PREMEDICATION

REACTIONS (4)
  - HYPOTONIA [None]
  - INFUSION RELATED REACTION [None]
  - SYNCOPE [None]
  - TACHYCARDIA [None]
